FAERS Safety Report 12784816 (Version 1)
Quarter: 2016Q3

REPORT INFORMATION
  Report Type: Spontaneous
  Country: US (occurrence: US)
  Receive Date: 20160927
  Receipt Date: 20160927
  Transmission Date: 20161109
  Serious: Yes (Other)
  Sender: FDA-Public Use
  Company Number: US-BAYER-2016-180933

PATIENT
  Age: 17 Year
  Sex: Male

DRUGS (1)
  1. KOGENATE FS [Suspect]
     Active Substance: ANTIHEMOPHILIC FACTOR, HUMAN RECOMBINANT
     Indication: FACTOR VIII DEFICIENCY
     Dosage: 1500 U, TIW PROPHYLAXIS AND 3000 UNITS PRN
     Route: 042
     Dates: start: 20120824

REACTIONS (3)
  - Hand fracture [None]
  - Contusion [None]
  - Accident [None]

NARRATIVE: CASE EVENT DATE: 20160909
